FAERS Safety Report 5964234-7 (Version None)
Quarter: 2008Q4

REPORT INFORMATION
  Report Type: 
  Country: None (occurrence: None)
  Receive Date: 20081124
  Receipt Date: 20081118
  Transmission Date: 20090506
  Serious: Yes (Other)
  Sender: FDA-Public Use
  Company Number: US-PFIZER INC-2007075244

PATIENT
  Age: 24 Year
  Sex: Male
  Weight: 86.2 kg

DRUGS (2)
  1. ZOLOFT [Suspect]
  2. CHANTIX [Suspect]

REACTIONS (2)
  - COGNITIVE DISORDER [None]
  - PSYCHOTIC DISORDER [None]
